FAERS Safety Report 6227744-3 (Version None)
Quarter: 2009Q2

REPORT INFORMATION
  Report Type: 
  Country: None (occurrence: None)
  Receive Date: 20090612
  Receipt Date: 20090602
  Transmission Date: 20091009
  Serious: Yes (Other)
  Sender: FDA-Public Use
  Company Number: US-PFIZER INC-2009209330

PATIENT
  Sex: Female
  Weight: 75 kg

DRUGS (10)
  1. GEODON [Suspect]
     Indication: SCHIZOPHRENIA
     Dosage: FREQUENCY: 2XDAY, EVERY DAY;
     Route: 048
     Dates: start: 20070801
  2. GEODON [Suspect]
     Indication: BIPOLAR DISORDER
  3. GEODON [Suspect]
     Indication: SCHIZOAFFECTIVE DISORDER
  4. TRAZODONE [Concomitant]
     Dosage: UNK
  5. KLONOPIN [Concomitant]
     Dosage: UNK
  6. LANTUS [Concomitant]
     Dosage: UNK
  7. METFORMIN/PIOGLITAZONE [Concomitant]
     Dosage: UNK
  8. CRESTOR [Concomitant]
     Dosage: UNK
  9. ACETYLSALICYLIC ACID [Concomitant]
     Dosage: UNK
  10. SEROQUEL [Concomitant]

REACTIONS (5)
  - ASTHENIA [None]
  - DEPRESSION [None]
  - PSYCHOTIC BEHAVIOUR [None]
  - SUICIDAL IDEATION [None]
  - TARDIVE DYSKINESIA [None]
